FAERS Safety Report 5738268-1 (Version None)
Quarter: 2008Q2

REPORT INFORMATION
  Report Type: 
  Country: None (occurrence: None)
  Receive Date: 20080514
  Receipt Date: 20080512
  Transmission Date: 20081010
  Serious: Yes (Other)
  Sender: FDA-Public Use
  Company Number: US-PFIZER INC-2008040735

PATIENT
  Sex: Female
  Weight: 50 kg

DRUGS (3)
  1. XALATAN [Suspect]
     Indication: GLAUCOMA
  2. LIPITOR [Concomitant]
     Indication: BLOOD CHOLESTEROL
  3. VALSARTAN [Concomitant]
     Indication: BLOOD PRESSURE

REACTIONS (2)
  - BREAST CANCER [None]
  - SKIN IRRITATION [None]
